FAERS Safety Report 6743905-9 (Version None)
Quarter: 2010Q2

REPORT INFORMATION
  Report Type: 
  Country: None (occurrence: None)
  Receive Date: 20100525
  Receipt Date: 20100510
  Transmission Date: 20101027
  Serious: Yes (Hospitalization)
  Sender: FDA-Public Use
  Company Number: 011603

PATIENT
  Sex: Male

DRUGS (5)
  1. VIMPAT [Suspect]
     Indication: EPILEPSY
     Dosage: LESS THAN 200MG TWICE A DAY ORAL, 200 MG BID, ORAL, 50 MG, BID ORAL
     Route: 048
     Dates: start: 20100503, end: 20100510
  2. VIMPAT [Suspect]
     Indication: EPILEPSY
     Dosage: LESS THAN 200MG TWICE A DAY ORAL, 200 MG BID, ORAL, 50 MG, BID ORAL
     Route: 048
     Dates: start: 20100412
  3. VIMPAT [Suspect]
     Indication: EPILEPSY
     Dosage: LESS THAN 200MG TWICE A DAY ORAL, 200 MG BID, ORAL, 50 MG, BID ORAL
     Route: 048
     Dates: start: 20100510
  4. ZONEGRAN [Suspect]
     Indication: EPILEPSY
     Dosage: 100 MG B ID ORAL, TAPERED DOWN GRADUALLY TO 2X100 MG ON 3-MAY 2010 ORAL
     Route: 048
     Dates: end: 20100503
  5. ZONEGRAN [Suspect]
     Indication: EPILEPSY
     Dosage: 100 MG B ID ORAL, TAPERED DOWN GRADUALLY TO 2X100 MG ON 3-MAY 2010 ORAL
     Route: 048
     Dates: start: 20100503

REACTIONS (3)
  - BALANCE DISORDER [None]
  - OVERDOSE [None]
  - VERTIGO [None]
